FAERS Safety Report 5201632-3 (Version None)
Quarter: 2006Q4

REPORT INFORMATION
  Report Type: 
  Country: None (occurrence: None)
  Receive Date: 20061006
  Receipt Date: 20061228
  Transmission Date: 20070319
  Serious: Yes (Hospitalization)
  Sender: FDA-Public Use
  Company Number: 2005-BP-21898RO(0)

PATIENT
  Age: 32 Year
  Sex: Male

DRUGS (3)
  1. METHADONE HCL [Suspect]
     Dosage: (10 MG), PO
     Route: 048
  2. ALPRAZOLAM [Suspect]
     Dosage: (2 MG) , PO
     Route: 047
  3. LIBRAX [Suspect]

REACTIONS (1)
  - OVERDOSE [None]
